FAERS Safety Report 10078581 (Version 1)
Quarter: 2014Q2

REPORT INFORMATION
  Report Type: Spontaneous
  Country: US (occurrence: None)
  Receive Date: 20140414
  Receipt Date: 20140414
  Transmission Date: 20141212
  Serious: No
  Sender: FDA-Public Use
  Company Number: None

PATIENT
  Age: 79 Year
  Sex: Male

DRUGS (9)
  1. ZYTIGA [Suspect]
     Route: 048
     Dates: start: 20140211
  2. ASPIRIN [Concomitant]
  3. WARFARIN [Concomitant]
  4. AMLODIPINE [Concomitant]
  5. BUMETANIDE [Concomitant]
  6. CARVEDILOL [Concomitant]
  7. ONGLYZA [Concomitant]
  8. SIMIVASTATIN [Concomitant]
  9. VICODIN HP [Concomitant]

REACTIONS (1)
  - Abscess [None]
